FAERS Safety Report 8788866 (Version 5)
Quarter: 2012Q4

REPORT INFORMATION
  Report Type: Report from Study
  Country: US (occurrence: US)
  Receive Date: 20120915
  Receipt Date: 20121108
  Transmission Date: 20130627
  Serious: Yes (Death)
  Sender: FDA-Public Use
  Company Number: US-ABBOTT-12P-163-0976944-00

PATIENT
  Age: 36 Year
  Sex: Female
  Weight: 79.45 kg

DRUGS (18)
  1. HUMIRA [Suspect]
     Indication: CROHN^S DISEASE
     Dosage: BASELINE
     Route: 058
     Dates: start: 20090122, end: 20090122
  2. HUMIRA [Suspect]
     Dosage: WEEK 2
     Route: 058
  3. HUMIRA [Suspect]
     Route: 058
  4. VIACTIV [Concomitant]
     Indication: MINERAL SUPPLEMENTATION
     Dates: start: 20060927
  5. CYANOCOBALAMIN [Concomitant]
     Indication: VITAMIN B12 DEFICIENCY
     Dosage: 1000 MCG/ML MONTHLY
     Route: 030
     Dates: start: 20061011
  6. ERGOCALCIFEROL [Concomitant]
     Indication: VITAMIN D DEFICIENCY
     Dates: start: 200810, end: 20100716
  7. ERGOCALCIFEROL [Concomitant]
     Dates: start: 20110218
  8. TYLENOL WITH CODEINE [Concomitant]
     Indication: ABDOMINAL PAIN
     Dosage: 1-2 TAB PRN
     Dates: start: 20080512
  9. XANAX [Concomitant]
     Indication: ANXIETY
     Dates: start: 2006
  10. ABILIFY [Concomitant]
     Indication: BIPOLAR II DISORDER
     Dates: start: 200610
  11. FOLIC ACID [Concomitant]
     Indication: VITAMIN SUPPLEMENTATION
     Dates: start: 2006
  12. LAMICTAL [Concomitant]
     Indication: BIPOLAR II DISORDER
     Dates: start: 200706
  13. PROTONIX [Concomitant]
     Indication: NAUSEA
     Dates: start: 200611
  14. PROTONIX [Concomitant]
     Indication: VOMITING
  15. SEASONALE [Concomitant]
     Indication: CONTRACEPTION
     Dates: start: 2006
  16. ZOFRAN [Concomitant]
     Indication: NAUSEA
     Dates: start: 200807
  17. ULTRAM [Concomitant]
     Indication: PAIN
     Dosage: 50 MG X 1 Q6H PRN
     Dates: start: 20100419
  18. TOPAMAX [Concomitant]
     Indication: PAIN
     Dosage: 25 MG X 1 QAM AND X2 QHS
     Dates: start: 20100419

REACTIONS (1)
  - Death [Fatal]
